FAERS Safety Report 6599560-4 (Version None)
Quarter: 2010Q1

REPORT INFORMATION
  Report Type: 
  Country: None (occurrence: None)
  Receive Date: 20100224
  Receipt Date: 20100211
  Transmission Date: 20100710
  Serious: Yes (Life-Threatening, Hospitalization, Other)
  Sender: FDA-Public Use
  Company Number: US-ELI_LILLY_AND_COMPANY-US201002004296

PATIENT
  Age: 54 Year
  Sex: Female

DRUGS (10)
  1. CYMBALTA [Suspect]
     Indication: FIBROMYALGIA
     Dates: start: 20100101, end: 20100209
  2. MULTI-VITAMIN [Concomitant]
  3. PREDNISONE [Concomitant]
     Dosage: 40 MG, DAILY (1/D)
  4. NORVASC [Concomitant]
     Dosage: 5 MG, DAILY (1/D)
  5. FOLIC ACID [Concomitant]
     Dosage: 1 MG, DAILY (1/D)
  6. PROTONIX [Concomitant]
     Dosage: 40 MG, DAILY (1/D)
  7. NEURONTIN [Concomitant]
     Dosage: 2400 MG, EVERY 8 HRS
  8. COLACE [Concomitant]
     Indication: CONSTIPATION
     Dosage: 100 MG, BID
  9. BACTRIM [Concomitant]
     Indication: PROPHYLAXIS
     Dosage: MONDAY, WEDNESDAY, FRIDAY
  10. DIFLUCAN [Concomitant]
     Dosage: 200 MG, DAILY (1/D)

REACTIONS (4)
  - FALL [None]
  - GAIT DISTURBANCE [None]
  - MEMORY IMPAIRMENT [None]
  - PANCYTOPENIA [None]
